FAERS Safety Report 7729592-1 (Version None)
Quarter: 2011Q3

REPORT INFORMATION
  Report Type: 
  Country: None (occurrence: None)
  Receive Date: 20110906
  Receipt Date: 20110826
  Transmission Date: 20111222
  Serious: Yes (Other)
  Sender: FDA-Public Use
  Company Number: US-BAYER-2011-006610

PATIENT
  Age: 17 Year
  Sex: Female
  Weight: 55.329 kg

DRUGS (5)
  1. DROSPIRENONE AND ETHINYL ESTRADIOL [Suspect]
     Indication: ACNE
  2. CLINDAMYCIN [Concomitant]
     Indication: ACNE
     Dosage: UNK
     Dates: start: 20080101
  3. DROSPIRENONE AND ETHINYL ESTRADIOL [Suspect]
     Indication: CONTRACEPTION
     Dosage: UNK
     Dates: start: 20090301, end: 20091001
  4. OMEGA 3 FISH [Concomitant]
     Indication: SUPPLEMENTATION THERAPY
     Dosage: UNK UNK, QD
     Dates: start: 20090901, end: 20091001
  5. BENZOYL PEROXIDE [Concomitant]
     Indication: ACNE
     Dosage: UNK UNK, QD
     Dates: start: 20080101

REACTIONS (4)
  - DEEP VEIN THROMBOSIS [None]
  - PAIN [None]
  - EMOTIONAL DISTRESS [None]
  - ANXIETY [None]
